FAERS Safety Report 7001342-6 (Version None)
Quarter: 2010Q3

REPORT INFORMATION
  Report Type: 
  Country: None (occurrence: None)
  Receive Date: 20100920
  Receipt Date: 20100608
  Transmission Date: 20110219
  Serious: No
  Sender: FDA-Public Use
  Company Number: US-ASTRAZENECA-2010SE26415

PATIENT
  Age: 12949 Day
  Sex: Male
  Weight: 68 kg

DRUGS (1)
  1. SEROQUEL [Suspect]
     Route: 048
     Dates: start: 20091201, end: 20100605

REACTIONS (5)
  - DRUG DOSE OMISSION [None]
  - FEELING HOT [None]
  - HEADACHE [None]
  - RASH MACULAR [None]
  - VOMITING [None]
